FAERS Safety Report 9249086 (Version 1)
Quarter: 2013Q2

REPORT INFORMATION
  Report Type: Spontaneous
  Country: DE (occurrence: DE)
  Receive Date: 20130423
  Receipt Date: 20130423
  Transmission Date: 20140414
  Serious: Yes (Death, Other)
  Sender: FDA-Public Use
  Company Number: DE-ELI_LILLY_AND_COMPANY-DE201304004412

PATIENT
  Age: 49 Year
  Sex: Male
  Weight: 105.9 kg

DRUGS (8)
  1. ZYPREXA [Suspect]
     Indication: SCHIZOPHRENIA
     Dosage: 15 MG, UNK
     Route: 048
     Dates: end: 20121211
  2. ZYPREXA [Suspect]
     Dosage: 30 MG, UNK
     Route: 048
     Dates: end: 20121211
  3. RISPERDAL [Concomitant]
     Dosage: 5 MG, UNK
     Dates: start: 20121211
  4. METFORMIN [Concomitant]
     Dosage: 255 MG, UNK
  5. VOTUM [Concomitant]
     Dosage: 40 MG, UNK
  6. HCT HEXAL [Concomitant]
     Dosage: 12.5 MG, UNK
  7. BISOPROLOL [Concomitant]
     Dosage: 10 MG, UNK
  8. AMLODIPINE [Concomitant]
     Dosage: 10 MG, UNK

REACTIONS (6)
  - Death [Fatal]
  - Dyspnoea [Fatal]
  - Chest pain [Fatal]
  - Loss of consciousness [Fatal]
  - Metabolic syndrome [Unknown]
  - Prescribed overdose [Unknown]
